FAERS Safety Report 14531125 (Version 1)
Quarter: 2018Q1

REPORT INFORMATION
  Report Type: Spontaneous
  Country: US (occurrence: US)
  Receive Date: 20180213
  Receipt Date: 20180213
  Transmission Date: 20180509
  Serious: Yes (Hospitalization)
  Sender: FDA-Public Use
  Company Number: None

PATIENT
  Age: 67 Year
  Sex: Male
  Weight: 112.05 kg

DRUGS (2)
  1. DAPTOMYCIN. [Suspect]
     Active Substance: DAPTOMYCIN
     Indication: CELLULITIS
     Route: 042
     Dates: start: 20180213, end: 20180213
  2. ERTAPENEM. [Suspect]
     Active Substance: ERTAPENEM SODIUM
     Indication: CELLULITIS
     Route: 042
     Dates: start: 20180213, end: 20180213

REACTIONS (2)
  - Dyspnoea [None]
  - Chills [None]

NARRATIVE: CASE EVENT DATE: 20180213
